FAERS Safety Report 8958995 (Version 1)
Quarter: 2012Q4

REPORT INFORMATION
  Report Type: Spontaneous
  Country: IN (occurrence: None)
  Receive Date: 20121128
  Receipt Date: 20121128
  Transmission Date: 20130627
  Serious: Yes (Other)
  Sender: FDA-Public Use
  Company Number: IN-1195355

PATIENT
  Age: 40 Year
  Sex: Male

DRUGS (4)
  1. PREDNISOLONE ACETATE [Suspect]
     Indication: POSTOPERATIVE CARE
     Dosage: ( to continuing)
(1 GTT  6x/day  Ophthalmic)
2.5mg / 0.1mL)  2.5mg  (None)
     Route: 047
  2. BEVACIZUMAB [Suspect]
     Indication: CORNEAL NEOVASCULARISATION
  3. VIGAMOX [Concomitant]
  4. CARBOXYMETHYLCELLULOSE SODIUM [Concomitant]

REACTIONS (7)
  - Ulcerative keratitis [None]
  - Graft ischaemia [None]
  - Corneal epithelium defect [None]
  - Wound dehiscence [None]
  - Flat anterior chamber of eye [None]
  - Vision blurred [None]
  - Corneal oedema [None]
